FAERS Safety Report 19149253 (Version 2)
Quarter: 2021Q2

REPORT INFORMATION
  Report Type: Report from Study
  Country: None (occurrence: US)
  Receive Date: 20210417
  Receipt Date: 20210427
  Transmission Date: 20210717
  Serious: Yes (Hospitalization)
  Sender: FDA-Public Use
  Company Number: US-ABBVIE-21K-163-3855547-00

PATIENT
  Age: 35 Year
  Sex: Female
  Weight: 119.4 kg

DRUGS (2)
  1. HUMIRA [Suspect]
     Active Substance: ADALIMUMAB
     Indication: HIDRADENITIS
     Dosage: CITRATE FREE
     Route: 058
     Dates: start: 202102
  2. NEXPLANON [Concomitant]
     Active Substance: ETONOGESTREL
     Indication: CONTRACEPTION

REACTIONS (2)
  - Panic attack [Recovering/Resolving]
  - Anxiety [Recovering/Resolving]

NARRATIVE: CASE EVENT DATE: 202102
